FAERS Safety Report 4519111-5 (Version None)
Quarter: 2004Q4

REPORT INFORMATION
  Report Type: 
  Country: None (occurrence: None)
  Receive Date: 20041206
  Receipt Date: 20041018
  Transmission Date: 20050328
  Serious: Yes (Other)
  Sender: FDA-Public Use
  Company Number: 200420357GDDC

PATIENT
  Age: 38 Year
  Sex: Male

DRUGS (2)
  1. INDAPAMIDE [Suspect]
     Indication: ESSENTIAL HYPERTENSION
     Route: 048
     Dates: start: 20010401, end: 20010801
  2. FOSINOPRIL SODIUM [Concomitant]
     Dates: start: 20010401

REACTIONS (2)
  - BLOOD TRIGLYCERIDES INCREASED [None]
  - DIABETES MELLITUS [None]
